FAERS Safety Report 14767743 (Version 1)
Quarter: 2018Q2

REPORT INFORMATION
  Report Type: Spontaneous
  Country: US (occurrence: US)
  Receive Date: 20180410
  Receipt Date: 20180410
  Transmission Date: 20180711
  Serious: Yes (Life-Threatening)
  Sender: FDA-Public Use
  Company Number: None

PATIENT
  Age: 78 Year
  Sex: Female
  Weight: 77.11 kg

DRUGS (9)
  1. D3 VIT [Concomitant]
  2. STRESS B-COMPLEX [Concomitant]
  3. EYE VIT [Concomitant]
  4. LANTANOPROST OPHTHALMIC [Suspect]
     Active Substance: LATANOPROST
     Indication: INTRAOCULAR PRESSURE INCREASED
     Dosage: ?          QUANTITY:1 GTT DROP(S);?
     Route: 047
     Dates: start: 20180308, end: 20180310
  5. MULTI VIT [Concomitant]
  6. IBUPROPHEN [Concomitant]
     Active Substance: IBUPROFEN
  7. TIMOLOL MAL 0.5% OP SOL RIS [Suspect]
     Active Substance: TIMOLOL MALEATE
     Indication: INTRAOCULAR PRESSURE INCREASED
     Dosage: ?          QUANTITY:1 GTT DROP(S);?
     Route: 047
     Dates: start: 20180321, end: 20180321
  8. BRIMONIDINE TARTRATE OPHTHALMIC SOLUTIION [Concomitant]
  9. B12 VIT [Concomitant]

REACTIONS (10)
  - Poor venous access [None]
  - Throat irritation [None]
  - Eye pain [None]
  - Dehydration [None]
  - Dysphagia [None]
  - Eye pruritus [None]
  - Eyelids pruritus [None]
  - Eye allergy [None]
  - Choking [None]
  - Swollen tongue [None]

NARRATIVE: CASE EVENT DATE: 20180308
